FAERS Safety Report 6608383-9 (Version None)
Quarter: 2010Q1

REPORT INFORMATION
  Report Type: 
  Country: None (occurrence: None)
  Receive Date: 20100225
  Receipt Date: 20100225
  Transmission Date: 20100710
  Serious: Yes (Other)
  Sender: FDA-Public Use
  Company Number: None

PATIENT
  Sex: Female

DRUGS (1)
  1. HUMIRA [Suspect]
     Indication: ANKYLOSING SPONDYLITIS
     Dosage: 40MG EVERY OTHER WEEK SUBQ
     Route: 058
     Dates: start: 20091007, end: 20100202

REACTIONS (3)
  - DYSPNOEA [None]
  - PRURITUS [None]
  - SWELLING [None]
